FAERS Safety Report 13497845 (Version 5)
Quarter: 2017Q3

REPORT INFORMATION
  Report Type: Spontaneous
  Country: US (occurrence: US)
  Receive Date: 20170428
  Receipt Date: 20170728
  Transmission Date: 20171127
  Serious: Yes (Hospitalization, Other)
  Sender: FDA-Public Use
  Company Number: US-SAOL THERAPEUTICS-2017SAO00786

PATIENT
  Age: 24 Year
  Sex: Male
  Weight: 146.3 kg

DRUGS (3)
  1. PRIALT [Suspect]
     Active Substance: ZICONOTIDE ACETATE
     Dosage: UNK ?G, \DAY
     Route: 037
  2. BACLOFEN. [Suspect]
     Active Substance: BACLOFEN
     Indication: PAIN
     Dosage: 300 ?G, \DAY
     Route: 037
  3. DILAUDID [Suspect]
     Active Substance: HYDROMORPHONE HYDROCHLORIDE
     Dosage: 25 ?G, \DAY
     Route: 037
     Dates: start: 201704

REACTIONS (5)
  - Complication associated with device [Unknown]
  - Respiratory arrest [Recovered/Resolved]
  - Off label use [Unknown]
  - Urticaria [Recovered/Resolved]
  - Somnolence [Recovered/Resolved]

NARRATIVE: CASE EVENT DATE: 20170420
